FAERS Safety Report 12461585 (Version 4)
Quarter: 2016Q2

REPORT INFORMATION
  Report Type: Spontaneous
  Country: US (occurrence: US)
  Receive Date: 20160613
  Receipt Date: 20160616
  Transmission Date: 20160815
  Serious: Yes (Hospitalization, Other)
  Sender: FDA-Public Use
  Company Number: US-ACTAVIS-2015-29384

PATIENT
  Age: 12 Year
  Sex: Male

DRUGS (2)
  1. RISPERIDONE (WATSON LABORATORIES) [Suspect]
     Active Substance: RISPERIDONE
     Indication: INTENTIONAL OVERDOSE
     Dosage: UNK
     Route: 048
  2. GUANFACINE (AELLC) [Suspect]
     Active Substance: GUANFACINE
     Indication: INTENTIONAL OVERDOSE
     Dosage: UNK
     Route: 048

REACTIONS (4)
  - Tachycardia [Recovered/Resolved]
  - Bradycardia [Recovered/Resolved]
  - Agitation [Unknown]
  - Intentional overdose [Unknown]
